FAERS Safety Report 8660015 (Version 2)
Quarter: 2012Q4

REPORT INFORMATION
  Report Type: 
  Country: US (occurrence: US)
  Receive Date: 20120711
  Receipt Date: 20121212
  Transmission Date: 20130627
  Serious: No
  Sender: FDA-Public Use
  Company Number: US-PFIZER INC-2012164899

PATIENT
  Age: 66 Year
  Sex: Female
  Weight: 104.31 kg

DRUGS (4)
  1. LYRICA [Suspect]
     Indication: NEUROPATHY PERIPHERAL
     Dosage: 75 mg, 1x/day
     Route: 048
     Dates: start: 20120116, end: 2012
  2. LYRICA [Suspect]
     Dosage: 75 mg, 2x/day
     Route: 048
     Dates: start: 2012
  3. NOVOLOG [Concomitant]
     Indication: DIABETES
     Dosage: UNK
  4. LEVEMIR [Concomitant]
     Indication: DIABETES
     Dosage: UNK

REACTIONS (3)
  - Pruritus [Unknown]
  - Neuropathy peripheral [Unknown]
  - Nasopharyngitis [Unknown]
